FAERS Safety Report 8556313-5 (Version None)
Quarter: 2012Q3

REPORT INFORMATION
  Report Type: 
  Country: None (occurrence: None)
  Receive Date: 20120801
  Receipt Date: 20120727
  Transmission Date: 20120928
  Serious: No
  Sender: FDA-Public Use
  Company Number: US-PFIZER INC-2012183053

PATIENT
  Sex: Female

DRUGS (2)
  1. GEODON [Suspect]
     Dosage: UNK
  2. ZOLOFT [Suspect]
     Dosage: UNK

REACTIONS (1)
  - INSOMNIA [None]
